FAERS Safety Report 9412789 (Version 2)
Quarter: 2013Q3

REPORT INFORMATION
  Report Type: Report from Study
  Country: US (occurrence: US)
  Receive Date: 20130722
  Receipt Date: 20130726
  Transmission Date: 20140515
  Serious: Yes (Other)
  Sender: FDA-Public Use
  Company Number: US-ABBOTT-13P-163-1122589-00

PATIENT
  Age: 29 Year
  Sex: Female

DRUGS (4)
  1. NORVIR [Suspect]
     Indication: HIV INFECTION
     Dosage: REGIMEN #1
     Route: 048
     Dates: start: 20121012, end: 20121018
  2. TRUVADA [Suspect]
     Indication: HIV INFECTION
     Dosage: REGIMEN #1
     Route: 048
     Dates: start: 20121012, end: 20130125
  3. RALTEGRAVIR [Suspect]
     Indication: HIV INFECTION
     Route: 048
     Dates: start: 20121018, end: 20130125
  4. REYATAZ [Suspect]
     Indication: HIV INFECTION
     Dosage: REGIMEN #1
     Route: 048
     Dates: start: 20121012, end: 20121018

REACTIONS (1)
  - Stillbirth [Unknown]
